FAERS Safety Report 13108595 (Version 3)
Quarter: 2018Q2

REPORT INFORMATION
  Report Type: Spontaneous
  Country: US (occurrence: US)
  Receive Date: 20170112
  Receipt Date: 20180531
  Transmission Date: 20180711
  Serious: No
  Sender: FDA-Public Use
  Company Number: US-ASTRAZENECA-2017SE02425

PATIENT
  Sex: Female

DRUGS (1)
  1. SYMBICORT [Suspect]
     Active Substance: BUDESONIDE\FORMOTEROL FUMARATE DIHYDRATE
     Dosage: 160/4.5 MICROGRAMS, UNKNOWN UNKNOWN
     Route: 055

REACTIONS (11)
  - Dyspnoea [Unknown]
  - Cough [Unknown]
  - Off label use [Not Recovered/Not Resolved]
  - Intentional product misuse [Not Recovered/Not Resolved]
  - Underdose [Unknown]
  - Product use issue [Not Recovered/Not Resolved]
  - Arthritis [Unknown]
  - Device use issue [Unknown]
  - Device issue [Unknown]
  - Sleep apnoea syndrome [Unknown]
  - Sneezing [Unknown]
